FAERS Safety Report 8531164-6 (Version None)
Quarter: 2012Q3

REPORT INFORMATION
  Report Type: 
  Country: None (occurrence: None)
  Receive Date: 20120723
  Receipt Date: 20120718
  Transmission Date: 20120928
  Serious: Yes (Other)
  Sender: FDA-Public Use
  Company Number: BE-ABBOTT-11P-013-0886076-00

PATIENT

DRUGS (4)
  1. AMLODIPINE [Concomitant]
     Indication: RAYNAUD'S PHENOMENON
     Dates: start: 20070101
  2. PRAXILENE [Concomitant]
     Indication: RAYNAUD'S PHENOMENON
     Dates: start: 20070101
  3. HUMIRA [Suspect]
     Dates: start: 20111018
  4. HUMIRA [Suspect]
     Indication: PSORIATIC ARTHROPATHY
     Dates: start: 20110407, end: 20110830

REACTIONS (1)
  - THROMBOCYTOPENIA [None]
